FAERS Safety Report 5304563-3 (Version None)
Quarter: 2007Q2

REPORT INFORMATION
  Report Type: 
  Country: None (occurrence: None)
  Receive Date: 20070423
  Receipt Date: 20070412
  Transmission Date: 20071010
  Serious: Yes (Hospitalization)
  Sender: FDA-Public Use
  Company Number: LB-NOVOPROD-261325

PATIENT
  Age: 1 Month
  Sex: Female
  Weight: 4.1 kg

DRUGS (11)
  1. NOVOSEVEN [Suspect]
     Indication: HAEMORRHAGE INTRACRANIAL
     Dosage: 60 UG/KG, SINGLE
  2. NOVOSEVEN [Suspect]
     Dosage: 30 UG/KG/EVERY 4-6 HRS FOR 10 DAYS
  3. NOVOSEVEN [Suspect]
     Dosage: 30 UG/KG/FOR 5 DAYS
     Route: 042
  4. NOVOSEVEN [Suspect]
     Dosage: 30 UG/KG, QID
  5. NOVOSEVEN [Suspect]
     Dosage: 30 UG/KG/WEEKLY
  6. GARDENAL                           /00023201/ [Concomitant]
     Dates: start: 20060304
  7. FENTANYL [Concomitant]
     Dates: start: 20060305, end: 20060307
  8. ZANTAC [Concomitant]
     Dates: start: 20060308
  9. ROCEPHIN [Concomitant]
     Dates: start: 20060311, end: 20060316
  10. SUPRAX                             /00821801/ [Concomitant]
     Dates: start: 20060317, end: 20060320
  11. CEFAZOLIN [Concomitant]
     Dates: start: 20060321, end: 20060322

REACTIONS (2)
  - HYDROCEPHALUS [None]
  - SUBARACHNOID HAEMORRHAGE [None]
